FAERS Safety Report 9422087 (Version 7)
Quarter: 2014Q1

REPORT INFORMATION
  Report Type: Report from Study
  Country: US (occurrence: US)
  Receive Date: 20130726
  Receipt Date: 20140110
  Transmission Date: 20141002
  Serious: Yes (Hospitalization)
  Sender: FDA-Public Use
  Company Number: US-ROCHE-1210185

PATIENT
  Age: 56 Year
  Sex: Female

DRUGS (7)
  1. PEGASYS [Suspect]
     Indication: CHRONIC HEPATITIS C
     Route: 058
     Dates: start: 20130227
  2. RIBAVIRIN [Suspect]
     Indication: CHRONIC HEPATITIS C
     Route: 048
     Dates: start: 20130227
  3. HYDROCODONE BITARTRATE [Concomitant]
     Indication: HEADACHE
     Route: 065
  4. LANTUS [Concomitant]
     Dosage: 20 UNITS IN AM AND 20 UNITS IN PM.
     Route: 065
  5. PRISTIQ [Concomitant]
     Indication: DEPRESSION
  6. PROZAC [Concomitant]
     Indication: DEPRESSION
     Route: 065
  7. PROZAC [Concomitant]
     Route: 065

REACTIONS (23)
  - Chronic obstructive pulmonary disease [Recovered/Resolved]
  - Chapped lips [Unknown]
  - Blood glucose increased [Recovered/Resolved]
  - Anaemia [Unknown]
  - Headache [Not Recovered/Not Resolved]
  - Asthenia [Not Recovered/Not Resolved]
  - Pain [Unknown]
  - Nausea [Unknown]
  - Fatigue [Unknown]
  - Full blood count decreased [Not Recovered/Not Resolved]
  - Insomnia [Unknown]
  - Irritability [Unknown]
  - Decreased appetite [Unknown]
  - Weight decreased [Unknown]
  - Malaise [Unknown]
  - Stress [Unknown]
  - Dizziness [Unknown]
  - Depressed mood [Unknown]
  - Cough [Unknown]
  - Vomiting [Unknown]
  - Dehydration [Unknown]
  - Red blood cell count decreased [Unknown]
  - Balance disorder [Unknown]
